FAERS Safety Report 8456011-2 (Version None)
Quarter: 2012Q2

REPORT INFORMATION
  Report Type: 
  Country: None (occurrence: None)
  Receive Date: 20120621
  Receipt Date: 20120615
  Transmission Date: 20120825
  Serious: Yes (Hospitalization)
  Sender: FDA-Public Use
  Company Number: PHHY2011JP06913

PATIENT
  Sex: Female

DRUGS (4)
  1. TASIGNA [Suspect]
     Indication: CHRONIC MYELOID LEUKAEMIA
     Dosage: 800 MG, DAILY
     Route: 048
     Dates: start: 20090826, end: 20100216
  2. TASIGNA [Suspect]
     Dosage: 800 MG, DAILY
     Route: 048
     Dates: start: 20100226
  3. MUCOSTA [Concomitant]
     Indication: GASTRITIS
     Dosage: 300 MG, UNK
     Route: 048
     Dates: start: 20090826
  4. ALLEGRA [Concomitant]
     Indication: PROPHYLAXIS
     Dosage: 120 MG, UNK
     Route: 048
     Dates: start: 20090826

REACTIONS (2)
  - CEREBRAL INFARCTION [None]
  - FLUID RETENTION [None]
